FAERS Safety Report 4847405-2 (Version None)
Quarter: 2005Q4

REPORT INFORMATION
  Report Type: 
  Country: None (occurrence: None)
  Receive Date: 20051205
  Receipt Date: 20051122
  Transmission Date: 20060501
  Serious: Yes (Other)
  Sender: FDA-Public Use
  Company Number: HQWYE298028OCT05

PATIENT
  Age: 28 Year
  Sex: Female

DRUGS (5)
  1. EFFEXOR XR [Suspect]
     Dosage: SEE IMAGE
     Dates: start: 20050726, end: 20050101
  2. EFFEXOR XR [Suspect]
     Dosage: SEE IMAGE
     Dates: start: 20050101
  3. GLUCOPHAGE [Concomitant]
  4. LEVOXYL [Concomitant]
  5. DARVOCET-N 50 [Concomitant]

REACTIONS (7)
  - ANOREXIA [None]
  - DISTURBANCE IN ATTENTION [None]
  - FEELING JITTERY [None]
  - HOMICIDAL IDEATION [None]
  - HYPERHIDROSIS [None]
  - SELF-INJURIOUS IDEATION [None]
  - SUICIDAL IDEATION [None]
